FAERS Safety Report 8547528-0 (Version None)
Quarter: 2012Q3

REPORT INFORMATION
  Report Type: 
  Country: None (occurrence: None)
  Receive Date: 20120727
  Receipt Date: 20120328
  Transmission Date: 20120928
  Serious: No
  Sender: FDA-Public Use
  Company Number: US-ASTRAZENECA-2012SE21056

PATIENT
  Age: 43 Year
  Sex: Male
  Weight: 171.5 kg

DRUGS (76)
  1. SEROQUEL XR [Suspect]
     Indication: MOOD SWINGS
     Route: 048
     Dates: start: 20101001, end: 20110201
  2. SEROQUEL XR [Suspect]
     Route: 048
     Dates: start: 20110201
  3. SEROQUEL XR [Suspect]
     Route: 048
     Dates: start: 20110201
  4. SEROQUEL XR [Suspect]
     Route: 048
     Dates: start: 20110201
  5. SEROQUEL XR [Suspect]
     Route: 048
     Dates: start: 20120201
  6. SEROQUEL XR [Suspect]
     Route: 048
     Dates: start: 20120201
  7. SEROQUEL XR [Suspect]
     Route: 048
     Dates: start: 20120201
  8. SEROQUEL XR [Suspect]
     Route: 048
     Dates: start: 20120201
  9. SEROQUEL XR [Suspect]
     Route: 048
     Dates: start: 20120201
  10. SEROQUEL XR [Suspect]
     Route: 048
  11. SEROQUEL XR [Suspect]
     Route: 048
  12. JALYN [Concomitant]
     Indication: PROSTATIC DISORDER
  13. SEROQUEL XR [Suspect]
     Route: 048
     Dates: start: 20120201
  14. SEROQUEL XR [Suspect]
     Route: 048
     Dates: start: 20120201
  15. SEROQUEL XR [Suspect]
     Route: 048
     Dates: start: 20120201
  16. SEROQUEL XR [Suspect]
     Route: 048
     Dates: start: 20120201
  17. SEROQUEL XR [Suspect]
     Route: 048
  18. SEROQUEL XR [Suspect]
     Route: 048
  19. SEROQUEL XR [Suspect]
     Route: 048
  20. SEROQUEL XR [Suspect]
     Route: 048
  21. REMERON [Concomitant]
     Indication: DEPRESSION
  22. SEROQUEL XR [Suspect]
     Route: 048
     Dates: start: 20110201
  23. SEROQUEL XR [Suspect]
     Route: 048
     Dates: start: 20110201
  24. SEROQUEL XR [Suspect]
     Route: 048
     Dates: start: 20120201
  25. SEROQUEL XR [Suspect]
     Route: 048
     Dates: start: 20120201
  26. SEROQUEL XR [Suspect]
     Route: 048
  27. SEROQUEL XR [Suspect]
     Route: 048
  28. SEROQUEL XR [Suspect]
     Route: 048
  29. SEROQUEL XR [Suspect]
     Route: 048
  30. PROPRANOLOL [Concomitant]
     Indication: HYPERTENSION
  31. SEROQUEL XR [Suspect]
     Route: 048
     Dates: start: 20110201
  32. SEROQUEL XR [Suspect]
     Route: 048
     Dates: start: 20120201
  33. SEROQUEL XR [Suspect]
     Route: 048
     Dates: start: 20120201
  34. SEROQUEL XR [Suspect]
     Route: 048
     Dates: start: 20120201
  35. SEROQUEL XR [Suspect]
     Route: 048
     Dates: start: 20120201
  36. SEROQUEL XR [Suspect]
     Route: 048
     Dates: start: 20120201
  37. SEROQUEL XR [Suspect]
     Route: 048
  38. SEROQUEL XR [Suspect]
     Route: 048
  39. SEROQUEL XR [Suspect]
     Indication: INSOMNIA
     Route: 048
     Dates: start: 20101001, end: 20110201
  40. SEROQUEL XR [Suspect]
     Route: 048
     Dates: start: 20101001, end: 20110201
  41. SEROQUEL XR [Suspect]
     Indication: BIPOLAR II DISORDER
     Route: 048
     Dates: start: 20101001, end: 20110201
  42. SEROQUEL XR [Suspect]
     Route: 048
     Dates: start: 20120201
  43. SEROQUEL XR [Suspect]
     Route: 048
     Dates: start: 20120201
  44. SEROQUEL XR [Suspect]
     Route: 048
     Dates: start: 20120201
  45. SEROQUEL XR [Suspect]
     Route: 048
     Dates: start: 20120201
  46. SEROQUEL XR [Suspect]
     Route: 048
     Dates: start: 20120201
  47. SEROQUEL XR [Suspect]
     Route: 048
     Dates: start: 20120201
  48. SEROQUEL XR [Suspect]
     Route: 048
  49. SEROQUEL XR [Suspect]
     Indication: ANXIETY
     Route: 048
     Dates: start: 20101001, end: 20110201
  50. SEROQUEL XR [Suspect]
     Route: 048
     Dates: start: 20120201
  51. SEROQUEL XR [Suspect]
     Route: 048
     Dates: start: 20120201
  52. SEROQUEL XR [Suspect]
     Route: 048
     Dates: start: 20120201
  53. SEROQUEL XR [Suspect]
     Route: 048
     Dates: start: 20120201
  54. SEROQUEL XR [Suspect]
     Route: 048
     Dates: start: 20120201
  55. SEROQUEL XR [Suspect]
     Route: 048
     Dates: start: 20120201
  56. SEROQUEL XR [Suspect]
     Route: 048
     Dates: start: 20120201
  57. SEROQUEL XR [Suspect]
     Route: 048
  58. SEROQUEL XR [Suspect]
     Route: 048
  59. STRATTERA [Concomitant]
  60. SEROQUEL XR [Suspect]
     Route: 048
     Dates: start: 20120201
  61. SEROQUEL XR [Suspect]
     Route: 048
     Dates: start: 20120201
  62. SEROQUEL XR [Suspect]
     Route: 048
     Dates: start: 20120201
  63. SEROQUEL XR [Suspect]
     Route: 048
     Dates: start: 20120201
  64. SEROQUEL XR [Suspect]
     Route: 048
     Dates: start: 20120201
  65. SEROQUEL XR [Suspect]
     Route: 048
     Dates: start: 20120201
  66. SEROQUEL XR [Suspect]
     Route: 048
  67. SEROQUEL XR [Suspect]
     Indication: DEPRESSION
     Route: 048
     Dates: start: 20101001, end: 20110201
  68. SEROQUEL XR [Suspect]
     Route: 048
     Dates: start: 20120201
  69. SEROQUEL XR [Suspect]
     Route: 048
     Dates: start: 20120201
  70. SEROQUEL XR [Suspect]
     Route: 048
     Dates: start: 20120201
  71. SEROQUEL XR [Suspect]
     Route: 048
     Dates: start: 20120201
  72. SEROQUEL XR [Suspect]
     Route: 048
     Dates: start: 20120201
  73. SEROQUEL XR [Suspect]
     Route: 048
     Dates: start: 20120201
  74. SEROQUEL XR [Suspect]
     Route: 048
     Dates: start: 20120201
  75. SEROQUEL XR [Suspect]
     Route: 048
  76. SEROQUEL XR [Suspect]
     Route: 048

REACTIONS (6)
  - ATTENTION DEFICIT/HYPERACTIVITY DISORDER [None]
  - WEIGHT INCREASED [None]
  - SOMNOLENCE [None]
  - INSOMNIA [None]
  - DRY MOUTH [None]
  - NASAL CONGESTION [None]
